FAERS Safety Report 9086630 (Version 1)
Quarter: 2013Q1

REPORT INFORMATION
  Report Type: Report from Study
  Country: US (occurrence: US)
  Receive Date: 20130130
  Receipt Date: 20130130
  Transmission Date: 20140127
  Serious: No
  Sender: FDA-Public Use
  Company Number: US-ABBOTT-12P-163-0985548-00

PATIENT
  Age: 63 Year
  Sex: Female

DRUGS (12)
  1. HUMIRA [Suspect]
     Indication: CROHN^S DISEASE
     Dosage: LOADING DOSE
     Route: 058
     Dates: start: 20120921
  2. CALCIUM [Concomitant]
  3. ASACOL [Concomitant]
  4. MECLAZINE [Concomitant]
  5. PREDNISONE [Concomitant]
  6. MULTIVITAMIN [Concomitant]
  7. TOPAMAX [Concomitant]
  8. TRICOR [Concomitant]
  9. NEXIUM [Concomitant]
  10. IMITREX [Concomitant]
  11. HYDROCODONE [Concomitant]
  12. SERTALINE [Concomitant]

REACTIONS (6)
  - Sputum discoloured [Recovering/Resolving]
  - Productive cough [Recovering/Resolving]
  - Chest pain [Recovering/Resolving]
  - Injection site pain [Recovered/Resolved]
  - Injection site pain [Recovering/Resolving]
  - Upper respiratory tract infection [Unknown]
